FAERS Safety Report 5735911-8 (Version None)
Quarter: 2008Q2

REPORT INFORMATION
  Report Type: 
  Country: None (occurrence: None)
  Receive Date: 20080509
  Receipt Date: 20080509
  Transmission Date: 20081010
  Serious: Yes (Other)
  Sender: FDA-Public Use
  Company Number: None

PATIENT
  Age: 34 Year
  Sex: Female
  Weight: 56.6996 kg

DRUGS (2)
  1. EFFEXOR XR [Suspect]
     Indication: BRIEF PSYCHOTIC DISORDER, WITH POSTPARTUM ONSET
     Dosage: 300 MG DAILY PO
     Route: 048
     Dates: start: 20061110, end: 20080508
  2. SYNTHROID [Concomitant]

REACTIONS (9)
  - DRUG INEFFECTIVE [None]
  - DRY EYE [None]
  - EYE PAIN [None]
  - FOREIGN BODY SENSATION IN EYES [None]
  - HEADACHE [None]
  - IMPAIRED WORK ABILITY [None]
  - LACRIMATION DECREASED [None]
  - OCULAR HYPERAEMIA [None]
  - PHOTOPHOBIA [None]
